FAERS Safety Report 5817890-8 (Version None)
Quarter: 2008Q3

REPORT INFORMATION
  Report Type: 
  Country: None (occurrence: None)
  Receive Date: 20080722
  Receipt Date: 20070615
  Transmission Date: 20090109
  Serious: No
  Sender: FDA-Public Use
  Company Number: US-BAYER-US-2007-022662

PATIENT
  Age: 62 Year
  Sex: Female
  Weight: 74 kg

DRUGS (1)
  1. MAGNEVIST [Suspect]
     Indication: NUCLEAR MAGNETIC RESONANCE IMAGING BRAIN
     Dosage: UNIT DOSE: 5 ML
     Route: 042
     Dates: start: 20070526, end: 20070526

REACTIONS (1)
  - NAUSEA [None]
